FAERS Safety Report 16031365 (Version 2)
Quarter: 2021Q1

REPORT INFORMATION
  Report Type: Spontaneous
  Country: US (occurrence: US)
  Receive Date: 20190304
  Receipt Date: 20210208
  Transmission Date: 20210419
  Serious: Yes (Death, Other)
  Sender: FDA-Public Use
  Company Number: PHEH2019US009086

PATIENT
  Age: 73 Year
  Sex: Male

DRUGS (2)
  1. TASIGNA [Suspect]
     Active Substance: NILOTINIB
     Dosage: UNK
     Route: 065
     Dates: start: 201105, end: 201610
  2. TASIGNA [Suspect]
     Active Substance: NILOTINIB
     Indication: CHRONIC MYELOID LEUKAEMIA
     Dosage: 2 DF, BID
     Route: 048

REACTIONS (59)
  - Blood loss anaemia [Unknown]
  - End stage renal disease [Unknown]
  - Peripheral vascular disorder [Unknown]
  - Ischaemic cardiomyopathy [Unknown]
  - Acute coronary syndrome [Unknown]
  - Myocardial infarction [Unknown]
  - Bradycardia [Unknown]
  - Hepatic cirrhosis [Unknown]
  - Peripheral arterial occlusive disease [Unknown]
  - Anxiety [Unknown]
  - Pain [Unknown]
  - Arteriosclerosis [Unknown]
  - Atrioventricular block complete [Unknown]
  - Cellulitis [Unknown]
  - Pneumonia [Unknown]
  - Thrombocytopenia [Unknown]
  - Chronic sinusitis [Unknown]
  - Aortic arteriosclerosis [Unknown]
  - Splenomegaly [Unknown]
  - Injury [Unknown]
  - Dehydration [Unknown]
  - Osteomyelitis [Unknown]
  - Hyperlipidaemia [Unknown]
  - Pyrexia [Unknown]
  - Ascites [Unknown]
  - Rotator cuff syndrome [Unknown]
  - Steal syndrome [Unknown]
  - Gout [Unknown]
  - Hyperuricaemia [Unknown]
  - Dyspnoea [Unknown]
  - Death [Fatal]
  - Vitamin B12 deficiency [Unknown]
  - Glucose tolerance impaired [Unknown]
  - Fatigue [Unknown]
  - Macular degeneration [Unknown]
  - Left atrial dilatation [Unknown]
  - Atelectasis [Unknown]
  - Blood creatinine increased [Unknown]
  - Right atrial dilatation [Unknown]
  - Hypertension [Unknown]
  - Cough [Unknown]
  - Leukocytosis [Unknown]
  - Cataract [Unknown]
  - Aortic stenosis [Unknown]
  - Sepsis [Unknown]
  - Cardiac failure congestive [Unknown]
  - Pleural effusion [Unknown]
  - Coronary artery disease [Unknown]
  - Arterial insufficiency [Unknown]
  - Pulmonary vascular disorder [Unknown]
  - Lumbar spinal stenosis [Unknown]
  - Type V hyperlipidaemia [Unknown]
  - Renal failure [Unknown]
  - Spinal stenosis [Unknown]
  - Dermatitis atopic [Unknown]
  - Dizziness [Unknown]
  - Atrioventricular block [Unknown]
  - Hypoaesthesia [Unknown]
  - Emotional distress [Unknown]

NARRATIVE: CASE EVENT DATE: 200906
